FAERS Safety Report 18544905 (Version 1)
Quarter: 2020Q4

REPORT INFORMATION
  Report Type: Spontaneous
  Country: US (occurrence: US)
  Receive Date: 20201125
  Receipt Date: 20201125
  Transmission Date: 20210114
  Serious: Yes (Death)
  Sender: FDA-Public Use
  Company Number: None

PATIENT
  Age: 77 Year
  Sex: Male

DRUGS (1)
  1. LOKELMA [Suspect]
     Active Substance: SODIUM ZIRCONIUM CYCLOSILICATE
     Indication: RENAL TRANSPLANT
     Dosage: ?          OTHER FREQUENCY:1 PACKET PO QD UTD;?
     Route: 048
     Dates: start: 20201009

REACTIONS (1)
  - Death [None]

NARRATIVE: CASE EVENT DATE: 20201120
